FAERS Safety Report 7067434-0 (Version None)
Quarter: 2010Q4

REPORT INFORMATION
  Report Type: 
  Country: None (occurrence: None)
  Receive Date: 20101026
  Receipt Date: 20101026
  Transmission Date: 20110411
  Serious: Yes (Other)
  Sender: FDA-Public Use
  Company Number: None

PATIENT
  Sex: Male
  Weight: 68.0396 kg

DRUGS (1)
  1. TRUVADA [Suspect]

REACTIONS (7)
  - CLUSTER HEADACHE [None]
  - DRUG INEFFECTIVE [None]
  - FACIAL PAIN [None]
  - HERPES ZOSTER [None]
  - INAPPROPRIATE SCHEDULE OF DRUG ADMINISTRATION [None]
  - OCULAR HYPERAEMIA [None]
  - SELF-MEDICATION [None]
